FAERS Safety Report 14694788 (Version 3)
Quarter: 2018Q2

REPORT INFORMATION
  Report Type: Spontaneous
  Country: US (occurrence: US)
  Receive Date: 20180329
  Receipt Date: 20180427
  Transmission Date: 20180711
  Serious: Yes (Hospitalization, Other)
  Sender: FDA-Public Use
  Company Number: US-SILVERGATE PHARMACEUTICALS, INC.-2018SIL00015

PATIENT
  Age: 5 Year
  Sex: Male
  Weight: 15.87 kg

DRUGS (9)
  1. CARVEDILOL. [Concomitant]
     Active Substance: CARVEDILOL
     Dosage: 0.5 TABLETS, 2X/DAY
     Route: 048
     Dates: start: 20180222
  2. ALDACTONE/SPIRONOLACTONE [Concomitant]
     Dosage: 2.5 ML, UNK
     Dates: start: 20180102
  3. BABY ASPIRIN [Concomitant]
     Active Substance: ASPIRIN
     Dosage: 40.5 MG, 4X/WEEK
     Route: 048
  4. FISH OIL 1280 MG OMEGA 3 PLUS 100 MG COQ10 [Concomitant]
  5. FUROSEMIDE. [Concomitant]
     Active Substance: FUROSEMIDE
     Dosage: 20 MG, 2X/DAY
     Route: 048
  6. SPIRONOLACTONE. [Concomitant]
     Active Substance: SPIRONOLACTONE
     Dosage: 12.5 MG, 1X/DAY
     Route: 048
  7. BABY ASPIRIN [Concomitant]
     Active Substance: ASPIRIN
     Dosage: 81 MG, 3X/WEEK
     Route: 048
  8. FUROSEMIDE. [Concomitant]
     Active Substance: FUROSEMIDE
     Dosage: 2 ML, 2X/DAY
     Dates: start: 20180102
  9. EPANED [Suspect]
     Active Substance: ENALAPRIL MALEATE
     Indication: CARDIAC FAILURE
     Dosage: 1 MG, 2X/DAY, MORNING AND NIGHT
     Route: 048
     Dates: start: 20180307, end: 20180308

REACTIONS (13)
  - Cardiac failure congestive [Unknown]
  - Feeling hot [Recovered/Resolved]
  - Dehydration [Recovered/Resolved]
  - Oxygen saturation decreased [Unknown]
  - Diarrhoea [Recovered/Resolved]
  - Hyperhidrosis [Recovered/Resolved]
  - Hypotension [Unknown]
  - Pulse abnormal [Recovered/Resolved]
  - Brain natriuretic peptide increased [Recovered/Resolved]
  - Shock [Recovered/Resolved]
  - Presyncope [Recovered/Resolved]
  - Cold sweat [Recovered/Resolved]
  - Altered state of consciousness [Recovered/Resolved]

NARRATIVE: CASE EVENT DATE: 201803
